FAERS Safety Report 13938028 (Version 3)
Quarter: 2019Q1

REPORT INFORMATION
  Report Type: Spontaneous
  Country: JP (occurrence: JP)
  Receive Date: 20170905
  Receipt Date: 20190211
  Transmission Date: 20190417
  Serious: Yes (Death, Hospitalization, Other)
  Sender: FDA-Public Use
  Company Number: JP-BRISTOL-MYERS SQUIBB COMPANY-BMS-2017-078461

PATIENT
  Age: 64 Year
  Sex: Male
  Weight: 61 kg

DRUGS (2)
  1. SPRYCEL [Suspect]
     Active Substance: DASATINIB
     Indication: PULMONARY HYPERTENSION
     Dosage: 140 MG, BID
     Route: 048
     Dates: start: 20170810, end: 20170812
  2. SPRYCEL [Suspect]
     Active Substance: DASATINIB
     Indication: ACUTE LYMPHOCYTIC LEUKAEMIA
     Dosage: 100 MG, UNK
     Route: 065
     Dates: start: 20170824, end: 20180315

REACTIONS (5)
  - Ileus paralytic [Recovered/Resolved]
  - Urinary retention [Recovered/Resolved]
  - Melaena [Recovered/Resolved]
  - Lymphangiosis carcinomatosa [Fatal]
  - Lung neoplasm malignant [Fatal]

NARRATIVE: CASE EVENT DATE: 20170812
